FAERS Safety Report 20802844 (Version 1)
Quarter: 2022Q2

REPORT INFORMATION
  Report Type: Spontaneous
  Country: US (occurrence: None)
  Receive Date: 20220509
  Receipt Date: 20220509
  Transmission Date: 20220721
  Serious: Yes (Hospitalization)
  Sender: FDA-Public Use
  Company Number: None

PATIENT
  Age: 70 Year
  Sex: Male

DRUGS (1)
  1. IBRUTINIB [Suspect]
     Active Substance: IBRUTINIB
     Indication: Chronic lymphocytic leukaemia
     Dosage: FREQUENCY : DAILY;?
     Route: 048
     Dates: start: 20190408, end: 20220505

REACTIONS (4)
  - Hemiparesis [None]
  - Aphasia [None]
  - Central nervous system lesion [None]
  - Ischaemic cerebral infarction [None]

NARRATIVE: CASE EVENT DATE: 20220502
